FAERS Safety Report 7400934-X (Version None)
Quarter: 2011Q2

REPORT INFORMATION
  Report Type: 
  Country: None (occurrence: None)
  Receive Date: 20110407
  Receipt Date: 20110331
  Transmission Date: 20111010
  Serious: Yes (Death)
  Sender: FDA-Public Use
  Company Number: GR-GENZYME-CAMP-1001525

PATIENT

DRUGS (3)
  1. CAMPATH [Suspect]
     Indication: ACUTE LEUKAEMIA
  2. CAMPATH [Suspect]
     Indication: STEM CELL TRANSPLANT
     Dosage: 5 MG, QD ON DAYS -2 AND -1
     Route: 042
  3. CYCLOSPORINE [Concomitant]
     Indication: PROPHYLAXIS AGAINST GRAFT VERSUS HOST DISEASE
     Route: 065

REACTIONS (1)
  - DEATH [None]
